FAERS Safety Report 23237764 (Version 2)
Quarter: 2024Q4

REPORT INFORMATION
  Report Type: Spontaneous
  Country: DE (occurrence: DE)
  Receive Date: 20231128
  Receipt Date: 20241002
  Transmission Date: 20250115
  Serious: Yes (Other)
  Sender: SANDOZ
  Company Number: DE-ABBVIE-5301364

PATIENT
  Age: 24 Year
  Sex: Female

DRUGS (3)
  1. ADALIMUMAB [Suspect]
     Active Substance: ADALIMUMAB
     Indication: Colitis
     Dosage: UNK
     Route: 058
     Dates: start: 2010
  2. ADALIMUMAB [Suspect]
     Active Substance: ADALIMUMAB
     Dosage: UNK
     Route: 058
     Dates: start: 2010
  3. HYDROXYCHLOROQUINE SULFATE [Concomitant]
     Active Substance: HYDROXYCHLOROQUINE SULFATE
     Indication: Systemic lupus erythematosus
     Route: 065

REACTIONS (36)
  - Respiratory failure [Unknown]
  - Intestinal anastomosis [Unknown]
  - Proctectomy [Unknown]
  - Lupus-like syndrome [Unknown]
  - Pleural effusion [Unknown]
  - Ileostomy [Unknown]
  - Ascites [Unknown]
  - Haemorrhagic fever [Unknown]
  - Colectomy [Unknown]
  - Ileostomy [Unknown]
  - Venous thrombosis limb [Unknown]
  - Peritonitis [Unknown]
  - Cardiac tamponade [Unknown]
  - Systemic lupus erythematosus [Unknown]
  - Depression [Unknown]
  - Fatigue [Unknown]
  - Cognitive disorder [Unknown]
  - Myalgia [Unknown]
  - Diffuse alopecia [Unknown]
  - Photosensitivity reaction [Unknown]
  - Ovarian failure [Unknown]
  - Intervertebral disc protrusion [Unknown]
  - Premature menopause [Unknown]
  - Antiphospholipid syndrome [Unknown]
  - Pouchitis [Unknown]
  - Erythema [Unknown]
  - Somatic symptom disorder [Unknown]
  - Raynaud^s phenomenon [Unknown]
  - Pain [Unknown]
  - Infection [Unknown]
  - Live birth [Unknown]
  - Arthralgia [Unknown]
  - Maternal exposure during pregnancy [Unknown]
  - Gliosis [Unknown]
  - Arthritis [Unknown]
  - Colitis ulcerative [Unknown]

NARRATIVE: CASE EVENT DATE: 20100101
